FAERS Safety Report 12779410 (Version 1)
Quarter: 2016Q3

REPORT INFORMATION
  Report Type: Spontaneous
  Country: US (occurrence: US)
  Receive Date: 20160923
  Receipt Date: 20160923
  Transmission Date: 20161109
  Serious: Yes (Other)
  Sender: FDA-Public Use
  Company Number: None

PATIENT
  Age: 26 Year
  Sex: Female
  Weight: 67.59 kg

DRUGS (4)
  1. METHOCARBYL [Concomitant]
  2. MIRENA [Suspect]
     Active Substance: LEVONORGESTREL
  3. ONE-A-DAY [Concomitant]
  4. NAPROXEN. [Concomitant]
     Active Substance: NAPROXEN

REACTIONS (2)
  - Sensory disturbance [None]
  - Vaginal disorder [None]

NARRATIVE: CASE EVENT DATE: 20160922
